FAERS Safety Report 19700643 (Version 1)
Quarter: 2021Q3

REPORT INFORMATION
  Report Type: Spontaneous
  Country: CN (occurrence: CN)
  Receive Date: 20210814
  Receipt Date: 20210814
  Transmission Date: 20211014
  Serious: Yes (Other)
  Sender: FDA-Public Use
  Company Number: CN-JNJFOC-20210819706

PATIENT
  Age: 86 Year
  Sex: Male
  Weight: 55 kg

DRUGS (2)
  1. XARELTO [Suspect]
     Active Substance: RIVAROXABAN
     Indication: ANTICOAGULANT THERAPY
  2. XARELTO [Suspect]
     Active Substance: RIVAROXABAN
     Indication: ATRIAL FIBRILLATION
     Dosage: 1 DF, QD
     Route: 048
     Dates: start: 20210228, end: 20210305

REACTIONS (7)
  - Upper gastrointestinal haemorrhage [Recovering/Resolving]
  - Prescribed underdose [Unknown]
  - Haematochezia [Recovering/Resolving]
  - Diarrhoea [Recovering/Resolving]
  - Underdose [Unknown]
  - Pain [Unknown]
  - Abdominal tenderness [Recovering/Resolving]

NARRATIVE: CASE EVENT DATE: 20210228
